FAERS Safety Report 7656108-0 (Version None)
Quarter: 2011Q3

REPORT INFORMATION
  Report Type: 
  Country: None (occurrence: None)
  Receive Date: 20110804
  Receipt Date: 20110802
  Transmission Date: 20111222
  Serious: Yes (Hospitalization)
  Sender: FDA-Public Use
  Company Number: CH-ROCHE-794475

PATIENT
  Age: 68 Year
  Sex: Female

DRUGS (4)
  1. ZOLEDRONOC ACID [Suspect]
     Route: 041
     Dates: start: 20101101, end: 20110701
  2. CALCIMAGON-D3 [Concomitant]
     Route: 048
  3. BONIVA [Suspect]
     Route: 048
     Dates: start: 20080501, end: 20101001
  4. DEANXIT [Concomitant]
     Dosage: DURATION: LONG TERM
     Route: 048

REACTIONS (1)
  - LOWER LIMB FRACTURE [None]
